FAERS Safety Report 11916019 (Version 1)
Quarter: 2016Q1

REPORT INFORMATION
  Report Type: Spontaneous
  Country: US (occurrence: US)
  Receive Date: 20160114
  Receipt Date: 20160114
  Transmission Date: 20160526
  Serious: Yes (Hospitalization)
  Sender: FDA-Public Use
  Company Number: US-SUN PHARMACEUTICAL INDUSTRIES LTD-2015US-109406

PATIENT
  Age: 25 Year
  Sex: Female

DRUGS (1)
  1. NITROFURANTOIN. [Suspect]
     Active Substance: NITROFURANTOIN
     Indication: PRODUCT USED FOR UNKNOWN INDICATION
     Dosage: UNK
     Route: 065

REACTIONS (6)
  - Vasculitis [Unknown]
  - Hypoxia [Unknown]
  - Dyspnoea exertional [Unknown]
  - Haemoptysis [Unknown]
  - Pneumonia [Unknown]
  - Pulmonary toxicity [Recovering/Resolving]
